FAERS Safety Report 21589246 (Version 1)
Quarter: 2022Q4

REPORT INFORMATION
  Report Type: Report from Study
  Country: US (occurrence: US)
  Receive Date: 20221114
  Receipt Date: 20221114
  Transmission Date: 20230113
  Serious: No
  Sender: FDA-Public Use
  Company Number: US-ABBVIE-22K-163-4474795-00

PATIENT
  Age: 72 Year
  Sex: Female

DRUGS (11)
  1. HUMIRA [Suspect]
     Active Substance: ADALIMUMAB
     Indication: Rheumatoid arthritis
     Dosage: CITRATE FREE?FORM STRENGTH: 40 MILLIGRAM
     Route: 058
     Dates: start: 20220702, end: 20220714
  2. HUMIRA [Suspect]
     Active Substance: ADALIMUMAB
     Dosage: FORM STRENGTH: 40 MILLIGRAM?CITRATE FREE
     Route: 058
     Dates: start: 20220902
  3. HUMIRA [Suspect]
     Active Substance: ADALIMUMAB
     Dosage: CITRATE FREE?FORM STRENGTH: 40 MILLIGRAM?STOP DATE 2022
     Route: 058
     Dates: start: 20220630
  4. HYDROXYCHLOROQUINE [Concomitant]
     Active Substance: HYDROXYCHLOROQUINE
     Indication: Product used for unknown indication
  5. METHOTREXATE [Concomitant]
     Active Substance: METHOTREXATE
     Indication: Product used for unknown indication
     Dosage: 2 AND A HALF*6?FREQUENCY TEXT:1 WEEK
     Route: 048
     Dates: start: 2021
  6. MODERNA COVID-19 VACCINE [Concomitant]
     Active Substance: ELASOMERAN
     Indication: COVID-19 immunisation
     Dosage: LAST DOSE
     Route: 030
     Dates: start: 20220713, end: 20220713
  7. MODERNA COVID-19 VACCINE [Concomitant]
     Active Substance: ELASOMERAN
     Indication: COVID-19 immunisation
     Dosage: FIRST DOSE
     Route: 030
     Dates: start: 20210219, end: 20210219
  8. MODERNA COVID-19 VACCINE [Concomitant]
     Active Substance: ELASOMERAN
     Indication: COVID-19 immunisation
     Dosage: SECOND DOSE
     Route: 030
     Dates: start: 20210319, end: 20210319
  9. MODERNA COVID-19 VACCINE [Concomitant]
     Active Substance: ELASOMERAN
     Indication: COVID-19 immunisation
     Dosage: THIRD DOSE
     Route: 030
     Dates: start: 20211220, end: 20211220
  10. PREDNISONE [Concomitant]
     Active Substance: PREDNISONE
     Indication: Product used for unknown indication
  11. FOLIC ACID [Concomitant]
     Active Substance: FOLIC ACID
     Indication: Product used for unknown indication

REACTIONS (13)
  - Temporomandibular joint syndrome [Recovered/Resolved]
  - Swollen tongue [Recovered/Resolved]
  - Skin disorder [Not Recovered/Not Resolved]
  - Vulvovaginal mycotic infection [Recovered/Resolved]
  - Pain [Not Recovered/Not Resolved]
  - Ear pain [Recovered/Resolved]
  - Sinus headache [Recovered/Resolved]
  - Vulvovaginal pain [Unknown]
  - Therapeutic product effect decreased [Unknown]
  - Pain in extremity [Unknown]
  - Arthralgia [Unknown]
  - Neck pain [Unknown]
  - Musculoskeletal stiffness [Unknown]

NARRATIVE: CASE EVENT DATE: 20220701
